FAERS Safety Report 7746864-5 (Version None)
Quarter: 2011Q3

REPORT INFORMATION
  Report Type: 
  Country: None (occurrence: None)
  Receive Date: 20110908
  Receipt Date: 20110825
  Transmission Date: 20111222
  Serious: Yes (Other)
  Sender: FDA-Public Use
  Company Number: 1000023431

PATIENT
  Age: 50 Year
  Sex: Male

DRUGS (8)
  1. PMS-PROCYCLIDINE (PROCYCLIDINE HYDROCHLORIDE) [Concomitant]
  2. ESCITALOPRAM [Suspect]
     Dosage: 20 MG, ORAL
     Route: 048
     Dates: start: 20100601, end: 20100701
  3. TOPAMAX (TOPIRAMATE) (TOPIRAMATE) [Concomitant]
  4. PANTOPRAZOLE [Concomitant]
  5. CLONAZEPAM [Concomitant]
  6. CYMBALTA (DYLOXETINE HYDROCHLORIDE) (CAPSULES) (DULOXETINE HYDROCHLORI [Concomitant]
  7. RISPERDAL [Concomitant]
  8. LITHIUM CARBONATE [Concomitant]

REACTIONS (13)
  - SUICIDAL IDEATION [None]
  - CONDITION AGGRAVATED [None]
  - MANIA [None]
  - HYPERACUSIS [None]
  - PARANOIA [None]
  - NAUSEA [None]
  - APATHY [None]
  - THINKING ABNORMAL [None]
  - AGGRESSION [None]
  - VOMITING [None]
  - HALLUCINATION [None]
  - SENSORY DISTURBANCE [None]
  - ALCOHOL USE [None]
